FAERS Safety Report 15219289 (Version 1)
Quarter: 2018Q3

REPORT INFORMATION
  Report Type: Spontaneous
  Country: US (occurrence: US)
  Receive Date: 20180731
  Receipt Date: 20180731
  Transmission Date: 20181010
  Serious: No
  Sender: FDA-Public Use
  Company Number: US-EMMAUS MEDICAL, INC.-EMM201807-000275

PATIENT
  Sex: Female

DRUGS (7)
  1. PENICILLIN VK [Concomitant]
     Active Substance: PENICILLIN V POTASSIUM
  2. MIRALAX [Concomitant]
     Active Substance: POLYETHYLENE GLYCOL 3350
  3. ELIQUIS [Concomitant]
     Active Substance: APIXABAN
  4. ENDARI [Suspect]
     Active Substance: GLUTAMINE
     Indication: SICKLE CELL DISEASE
     Route: 048
     Dates: start: 20180601
  5. ZYRTEC [Concomitant]
     Active Substance: CETIRIZINE HYDROCHLORIDE
  6. HYDROXYUREA. [Concomitant]
     Active Substance: HYDROXYUREA
  7. NORCO [Concomitant]
     Active Substance: ACETAMINOPHEN\HYDROCODONE BITARTRATE

REACTIONS (1)
  - Drug intolerance [Unknown]
